FAERS Safety Report 6580642-8 (Version None)
Quarter: 2010Q1

REPORT INFORMATION
  Report Type: 
  Country: None (occurrence: None)
  Receive Date: 20100212
  Receipt Date: 20100209
  Transmission Date: 20100710
  Serious: Yes (Death)
  Sender: FDA-Public Use
  Company Number: ES-SANOFI-AVENTIS-2010SA008062

PATIENT
  Age: 64 Year

DRUGS (6)
  1. OXALIPLATIN [Suspect]
     Indication: COLON CANCER
     Route: 041
     Dates: start: 20090731, end: 20090731
  2. OXALIPLATIN [Suspect]
     Route: 041
     Dates: start: 20091124, end: 20091124
  3. FLUOROURACIL [Suspect]
     Indication: COLON CANCER
     Route: 042
     Dates: start: 20090731, end: 20090731
  4. FLUOROURACIL [Suspect]
     Route: 042
     Dates: start: 20091124, end: 20091124
  5. FOLINIC ACID [Suspect]
     Indication: COLON CANCER
     Route: 041
     Dates: start: 20090731, end: 20090731
  6. FOLINIC ACID [Suspect]
     Route: 041
     Dates: start: 20091124, end: 20091124

REACTIONS (1)
  - DEATH [None]
